FAERS Safety Report 4977777-X (Version None)
Quarter: 2006Q2

REPORT INFORMATION
  Report Type: 
  Country: None (occurrence: None)
  Receive Date: 20060420
  Receipt Date: 20060406
  Transmission Date: 20061013
  Serious: Yes (Other)
  Sender: FDA-Public Use
  Company Number: PHBS2006VE05430

PATIENT
  Age: 25 Year
  Sex: Male

DRUGS (2)
  1. SANDIMMUNE [Suspect]
     Indication: APLASIA
     Dosage: 1000 MG
     Route: 048
     Dates: start: 20060323, end: 20060404
  2. ATGAM [Concomitant]
     Route: 042
     Dates: start: 20060329, end: 20060402

REACTIONS (2)
  - ERYTHEMA [None]
  - JAUNDICE [None]
